FAERS Safety Report 4948552-7 (Version None)
Quarter: 2006Q1

REPORT INFORMATION
  Report Type: 
  Country: None (occurrence: None)
  Receive Date: 20060313
  Receipt Date: 20060228
  Transmission Date: 20060701
  Serious: Yes (Other)
  Sender: FDA-Public Use
  Company Number: 2006030561

PATIENT

DRUGS (8)
  1. AZITHROMYCIN [Suspect]
     Indication: ILL-DEFINED DISORDER
     Dosage: ORAL
     Route: 048
  2. SPIRIVA [Concomitant]
     Indication: ILL-DEFINED DISORDER
     Dates: start: 20051220, end: 20060101
  3. TERSIGAN (OXITROPIUM BROMIDE) [Concomitant]
  4. SPIROPENT (CLENBUTEROL HYDROCHLORIDE) [Concomitant]
  5. UNIPHYL [Concomitant]
  6. MONTELUKAST SODIUM (MONTELUKAST SODIUM) [Concomitant]
  7. FLUTIDE (FLUTICASONE PROPIONATE) [Concomitant]
  8. PROCATEROL HCL [Concomitant]

REACTIONS (1)
  - GRANULOCYTE COUNT DECREASED [None]
